FAERS Safety Report 8190543-X (Version None)
Quarter: 2012Q1

REPORT INFORMATION
  Report Type: 
  Country: None (occurrence: None)
  Receive Date: 20120307
  Receipt Date: 20120229
  Transmission Date: 20120608
  Serious: Yes (Hospitalization)
  Sender: FDA-Public Use
  Company Number: US-AMGEN-USASP2012008066

PATIENT
  Age: 30 Year
  Sex: Male
  Weight: 62.59 kg

DRUGS (1)
  1. SENSIPAR [Suspect]
     Indication: HYPERPARATHYROIDISM PRIMARY
     Dosage: 60 MG, BID
     Route: 048
     Dates: start: 20061019, end: 20110202

REACTIONS (3)
  - NEPHROLITHIASIS [None]
  - HYPERPARATHYROIDISM [None]
  - HYPERCALCIURIA [None]
